FAERS Safety Report 9587215 (Version 1)
Quarter: 2013Q4

REPORT INFORMATION
  Report Type: Spontaneous
  Country: FR (occurrence: FR)
  Receive Date: 20131003
  Receipt Date: 20131003
  Transmission Date: 20140711
  Serious: Yes (Congenital Anomaly)
  Sender: FDA-Public Use
  Company Number: FR-GLAXOSMITHKLINE-B0925326A

PATIENT
  Sex: Male

DRUGS (1)
  1. LAMICTAL [Suspect]
     Indication: EPILEPSY
     Route: 064

REACTIONS (3)
  - Spondyloepiphyseal dysplasia [Not Recovered/Not Resolved]
  - Bone development abnormal [Not Recovered/Not Resolved]
  - Foetal exposure during pregnancy [Unknown]
